FAERS Safety Report 10695247 (Version 2)
Quarter: 2015Q1

REPORT INFORMATION
  Report Type: Spontaneous
  Country: DE (occurrence: DE)
  Receive Date: 20150107
  Receipt Date: 20150217
  Transmission Date: 20150721
  Serious: Yes (Other)
  Sender: FDA-Public Use
  Company Number: DE-SA-2015SA001179

PATIENT
  Sex: Female

DRUGS (4)
  1. PIPERACILLIN [Concomitant]
     Active Substance: PIPERACILLIN
     Dates: start: 201412
  2. CLEXANE [Suspect]
     Active Substance: ENOXAPARIN SODIUM
     Route: 065
     Dates: start: 201412
  3. TORASEMIDE [Concomitant]
     Active Substance: TORSEMIDE
  4. TAZOBACTAM [Concomitant]
     Active Substance: TAZOBACTAM
     Dates: start: 201412

REACTIONS (1)
  - Gamma-glutamyltransferase increased [Unknown]
